FAERS Safety Report 6237266-1 (Version None)
Quarter: 2009Q2

REPORT INFORMATION
  Report Type: 
  Country: None (occurrence: None)
  Receive Date: 20090617
  Receipt Date: 20080305
  Transmission Date: 20091009
  Serious: No
  Sender: FDA-Public Use
  Company Number: 272879

PATIENT
  Age: 66 Year
  Sex: Male

DRUGS (1)
  1. LEVEMIR [Suspect]
     Indication: TYPE 2 DIABETES MELLITUS
     Dosage: 13 IU, QD, SUBCUTANEOUS
     Route: 058

REACTIONS (1)
  - BLOOD GLUCOSE FLUCTUATION [None]
